FAERS Safety Report 7457716-2 (Version None)
Quarter: 2011Q1

REPORT INFORMATION
  Report Type: 
  Country: None (occurrence: None)
  Receive Date: 20110302
  Receipt Date: 20100901
  Transmission Date: 20110831
  Serious: Yes (Death)
  Sender: FDA-Public Use
  Company Number: 163-21880-10090269

PATIENT
  Age: 68 Year
  Sex: Male

DRUGS (7)
  1. METHADONE HCL [Concomitant]
  2. LOMOTIL [Concomitant]
  3. LORAZEPAM [Concomitant]
  4. REVLIMID [Suspect]
     Indication: MYELODYSPLASTIC SYNDROME
     Dosage: 15 MG, EVERY 3 DAYS, PO
     Route: 048
     Dates: start: 20081201, end: 20091101
  5. REVLIMID [Suspect]
     Indication: MULTIPLE MYELOMA
     Dosage: 15 MG, EVERY 3 DAYS, PO
     Route: 048
     Dates: start: 20081201, end: 20091101
  6. INDOCIN [Concomitant]
  7. OMEPRAZOLE [Concomitant]

REACTIONS (1)
  - DEATH [None]
